FAERS Safety Report 7012694-5 (Version None)
Quarter: 2010Q3

REPORT INFORMATION
  Report Type: 
  Country: None (occurrence: None)
  Receive Date: 20100914
  Receipt Date: 20100211
  Transmission Date: 20110219
  Serious: Yes (Other)
  Sender: FDA-Public Use
  Company Number: 2008050796

PATIENT
  Age: 67 Year
  Sex: Female
  Weight: 99.8 kg

DRUGS (3)
  1. GLIPIZIDE [Suspect]
     Indication: DIABETES MELLITUS
     Dosage: 10 MG, 3X/DAY, ORAL
     Route: 048
     Dates: start: 20070101
  2. DILTIAZEM [Concomitant]
  3. TIMOLOL MALEATE [Concomitant]

REACTIONS (3)
  - ALOPECIA [None]
  - BLOOD GLUCOSE DECREASED [None]
  - URINE ODOUR ABNORMAL [None]
